FAERS Safety Report 7911283-5 (Version None)
Quarter: 2011Q4

REPORT INFORMATION
  Report Type: 
  Country: None (occurrence: None)
  Receive Date: 20111114
  Receipt Date: 20111101
  Transmission Date: 20120403
  Serious: Yes (Hospitalization)
  Sender: FDA-Public Use
  Company Number: AU-ELI_LILLY_AND_COMPANY-AU201110008309

PATIENT
  Sex: Female

DRUGS (1)
  1. EVISTA [Suspect]
     Indication: PROPHYLAXIS
     Dosage: 60 MG, QD
     Route: 048

REACTIONS (1)
  - PANIC ATTACK [None]
